FAERS Safety Report 22713395 (Version 2)
Quarter: 2023Q4

REPORT INFORMATION
  Report Type: Spontaneous
  Country: US (occurrence: US)
  Receive Date: 20230717
  Receipt Date: 20231101
  Transmission Date: 20240110
  Serious: No
  Sender: FDA-Public Use
  Company Number: US-SA-SAC20230713001125

PATIENT
  Sex: Female

DRUGS (3)
  1. DUPIXENT [Suspect]
     Active Substance: DUPILUMAB
     Indication: Dermatitis atopic
     Dosage: 300 MG, QOW
     Route: 058
  2. TAGAMET HB [Concomitant]
     Active Substance: CIMETIDINE
  3. ZYRTEC [Concomitant]
     Active Substance: CETIRIZINE HYDROCHLORIDE

REACTIONS (15)
  - Eczema [Unknown]
  - Dry skin [Unknown]
  - Gluten sensitivity [Unknown]
  - Blood cholesterol increased [Unknown]
  - Depressed mood [Unknown]
  - Crying [Unknown]
  - Middle insomnia [Unknown]
  - Asthenia [Unknown]
  - Urticaria [Recovering/Resolving]
  - Pruritus [Unknown]
  - Skin exfoliation [Unknown]
  - Rash [Recovering/Resolving]
  - Injection site pain [Unknown]
  - Product preparation error [Unknown]
  - Dermatitis atopic [Unknown]
